FAERS Safety Report 6503292-8 (Version None)
Quarter: 2009Q4

REPORT INFORMATION
  Report Type: 
  Country: None (occurrence: None)
  Receive Date: 20091217
  Receipt Date: 20091208
  Transmission Date: 20100525
  Serious: Yes (Other)
  Sender: FDA-Public Use
  Company Number: CH-ASTRAZENECA-2007PK02358

PATIENT
  Age: 70 Year
  Sex: Female

DRUGS (8)
  1. SEROQUEL [Suspect]
     Indication: DEPRESSION
     Route: 048
  2. SEROQUEL [Suspect]
     Route: 048
  3. SEROQUEL [Suspect]
     Route: 048
  4. SEROQUEL [Suspect]
     Route: 048
  5. ZYPREXA [Concomitant]
     Indication: DEPRESSION
     Route: 048
  6. TRAZODONE HCL [Concomitant]
     Route: 048
     Dates: end: 20070721
  7. TEMESTA [Concomitant]
     Route: 048
     Dates: end: 20070727
  8. ASPIRIN [Concomitant]
     Indication: CAROTID ARTERY STENOSIS
     Route: 048

REACTIONS (1)
  - PLEUROTHOTONUS [None]
